FAERS Safety Report 21145820 (Version 1)
Quarter: 2022Q3

REPORT INFORMATION
  Report Type: Spontaneous
  Country: CA (occurrence: CA)
  Receive Date: 20220729
  Receipt Date: 20220729
  Transmission Date: 20221027
  Serious: Yes (Hospitalization, Other)
  Sender: FDA-Public Use
  Company Number: CA-TEVA-2022-CA-2057996

PATIENT
  Age: 6 Decade
  Sex: Male

DRUGS (16)
  1. PAROXETINE HYDROCHLORIDE [Suspect]
     Active Substance: PAROXETINE HYDROCHLORIDE
     Indication: Depression
     Dosage: 20 MILLIGRAM DAILY;
     Route: 048
  2. PAROXETINE HYDROCHLORIDE [Suspect]
     Active Substance: PAROXETINE HYDROCHLORIDE
     Dosage: 10 MILLIGRAM DAILY;
     Route: 048
  3. ASENAPINE MALEATE [Suspect]
     Active Substance: ASENAPINE MALEATE
     Indication: Depression
     Dosage: 10 MILLIGRAM DAILY;
     Route: 048
  4. ASENAPINE MALEATE [Suspect]
     Active Substance: ASENAPINE MALEATE
     Dosage: 5 MILLIGRAM DAILY;
     Route: 048
  5. BENZTROPINE [Suspect]
     Active Substance: BENZTROPINE
     Indication: Head titubation
     Dosage: 2 MILLIGRAM DAILY;
     Route: 048
  6. BENZTROPINE [Suspect]
     Active Substance: BENZTROPINE
     Indication: Extrapyramidal disorder
  7. BENZTROPINE [Suspect]
     Active Substance: BENZTROPINE
     Indication: Cogwheel rigidity
  8. BISOPROLOL [Concomitant]
     Active Substance: BISOPROLOL
     Indication: Product used for unknown indication
     Dosage: 5 MILLIGRAM DAILY;
     Route: 048
  9. DDAVP [Concomitant]
     Active Substance: DESMOPRESSIN ACETATE
     Indication: Nephrogenic diabetes insipidus
     Dosage: 240 MILLIGRAM DAILY;
     Route: 048
  10. GABAPENTIN [Concomitant]
     Active Substance: GABAPENTIN
     Indication: Product used for unknown indication
     Dosage: 1800 MILLIGRAM DAILY;
     Route: 048
  11. MEDROXYPROGESTERO [Concomitant]
     Indication: Product used for unknown indication
     Dosage: 200 MILLIGRAM DAILY;
     Route: 048
  12. MEDROXYPROGESTERO [Concomitant]
     Route: 030
  13. QUINAPRIL [Concomitant]
     Active Substance: QUINAPRIL
     Indication: Product used for unknown indication
     Dosage: 20 MILLIGRAM DAILY;
     Route: 048
  14. ROSUVASTATIN [Concomitant]
     Active Substance: ROSUVASTATIN
     Indication: Product used for unknown indication
     Dosage: 200 MILLIGRAM DAILY;
     Route: 048
  15. DIVALPROEX SODIUM [Concomitant]
     Active Substance: DIVALPROEX SODIUM
     Indication: Product used for unknown indication
     Dosage: 500 MILLIGRAM DAILY;
     Route: 048
  16. DIVALPROEX SODIUM [Concomitant]
     Active Substance: DIVALPROEX SODIUM
     Dosage: 1000 MILLIGRAM DAILY;
     Route: 048

REACTIONS (3)
  - Anticholinergic syndrome [Recovered/Resolved]
  - Delirium [Recovered/Resolved]
  - Toxicity to various agents [Recovered/Resolved]
